FAERS Safety Report 21571660 (Version 2)
Quarter: 2022Q4

REPORT INFORMATION
  Report Type: Report from Study
  Country: GB (occurrence: GB)
  Receive Date: 20221109
  Receipt Date: 20221122
  Transmission Date: 20230113
  Serious: Yes (Hospitalization, Disabling, Other)
  Sender: FDA-Public Use
  Company Number: GB-EMA-DD-20201012-faizan_m-143142

PATIENT
  Age: 73 Year
  Sex: Male
  Weight: 100 kg

DRUGS (33)
  1. BENDAMUSTINE HYDROCHLORIDE [Suspect]
     Active Substance: BENDAMUSTINE HYDROCHLORIDE
     Indication: Mantle cell lymphoma
     Dosage: 120 DOSAGE FORM, QD, LAST DOSE ADMINISTERED ON 09-MAR-2020
     Route: 041
     Dates: start: 20200309, end: 20200309
  2. BENDAMUSTINE HYDROCHLORIDE [Suspect]
     Active Substance: BENDAMUSTINE HYDROCHLORIDE
     Dosage: (LAST DOSE ADMINISTERED ON 09-MAR-2020)
     Route: 041
     Dates: start: 20200309, end: 20200309
  3. BENDAMUSTINE HYDROCHLORIDE [Suspect]
     Active Substance: BENDAMUSTINE HYDROCHLORIDE
     Dosage: 1 DOSAGE FORM, 1 DF (DOSE FORM: 230), QD
     Route: 041
     Dates: start: 20200309, end: 20200309
  4. BENDAMUSTINE HYDROCHLORIDE [Suspect]
     Active Substance: BENDAMUSTINE HYDROCHLORIDE
     Dosage: 12 DOSAGE FORM, LAST DOSE ADMINISTERED ON 09-MAR-2020
     Route: 041
     Dates: start: 20200309
  5. BENDAMUSTINE HYDROCHLORIDE [Suspect]
     Active Substance: BENDAMUSTINE HYDROCHLORIDE
     Dosage: 124 DOSAGE FORM
     Route: 065
     Dates: start: 20200309
  6. BENDAMUSTINE HYDROCHLORIDE [Suspect]
     Active Substance: BENDAMUSTINE HYDROCHLORIDE
     Dosage: UNK (1X/DAY (DOSAGE FORM: 201))
     Route: 065
     Dates: start: 20200309
  7. BENDAMUSTINE HYDROCHLORIDE [Suspect]
     Active Substance: BENDAMUSTINE HYDROCHLORIDE
     Dosage: 12 DOSAGE FORM (DOSE FORM: 120 )
     Route: 065
     Dates: start: 20200309
  8. BENDAMUSTINE HYDROCHLORIDE [Suspect]
     Active Substance: BENDAMUSTINE HYDROCHLORIDE
     Dosage: 4 DOSAGE FORM, QD(START DATE:09-MAR-2021,STOP DATE:09-MAR-2021)
     Route: 065
     Dates: start: 20210309
  9. BENDAMUSTINE HYDROCHLORIDE [Suspect]
     Active Substance: BENDAMUSTINE HYDROCHLORIDE
     Dosage: UNK, DOSE FORM: 16, QD
     Route: 065
     Dates: start: 20200309, end: 20200309
  10. BENDAMUSTINE HYDROCHLORIDE [Suspect]
     Active Substance: BENDAMUSTINE HYDROCHLORIDE
     Dosage: 4 DOSAGE FORM, QD, LAST DOSE ADMINISTERED ON 09-MAR-2020
     Route: 041
     Dates: start: 20200309, end: 20200309
  11. BENDAMUSTINE HYDROCHLORIDE [Suspect]
     Active Substance: BENDAMUSTINE HYDROCHLORIDE
     Dosage: 1 DOSAGE FORM, QD (START DATE: 09-MAR-2021DOSE FORM OF 365)
     Route: 065
  12. BENDAMUSTINE HYDROCHLORIDE [Suspect]
     Active Substance: BENDAMUSTINE HYDROCHLORIDE
     Dosage: 1 DOSAGE FORM, 1 DF (DOSE FORM: 230), QD
     Route: 041
     Dates: start: 20200309, end: 20200309
  13. BENDAMUSTINE HYDROCHLORIDE [Suspect]
     Active Substance: BENDAMUSTINE HYDROCHLORIDE
     Dosage: 120 DOSAGE FORM, QD, LAST DOSE ADMINISTERED ON 09-MAR-2020
     Route: 041
     Dates: start: 20200309, end: 20200309
  14. RITUXIMAB [Suspect]
     Active Substance: RITUXIMAB
     Indication: Mantle cell lymphoma
     Dosage: 318 DOSAGE FORM, DOSAGE FORM: INFUSION, SOLUTION
     Route: 041
     Dates: start: 20200303, end: 20200309
  15. RITUXIMAB [Suspect]
     Active Substance: RITUXIMAB
     Dosage: 1 DF (DOSE FORM: 318), DOSAGE FORM: INFUSION, SOLUTION
     Route: 041
     Dates: start: 20200309, end: 20200309
  16. CYTARABINE [Suspect]
     Active Substance: CYTARABINE
     Indication: Mantle cell lymphoma
     Dosage: 16 DOSAGE FORM, QD, MOST RECENT DOSE ON 11/MAR/2020
     Route: 065
     Dates: start: 20200309, end: 20200311
  17. CYTARABINE [Suspect]
     Active Substance: CYTARABINE
     Dosage: 20 MD, QD, DOSAGE FORM: INFUSION, SOLUTION, LAST ADMINISTERED ON 11-MAR-2020,MOST RECENT DOSE OF  CY
     Route: 040
     Dates: start: 20210309, end: 20210311
  18. CYTARABINE [Suspect]
     Active Substance: CYTARABINE
     Dosage: 20 MG, QD (ON 11 MAR2 020, HE RECEIVED MOST RECENT DOSE OF CYTARABINE PRIOR TO EVENT ONSET, DOSAGE),
     Route: 065
     Dates: start: 20210309, end: 20210311
  19. CYTARABINE [Suspect]
     Active Substance: CYTARABINE
     Dosage: 60 MG, DOSAGE FORM: INFUSION, SOLUTION, LAST ADMINISTERED ON 11-MAR-2020,MOST RECENT DOSE OF
     Route: 041
     Dates: start: 20200311
  20. CYTARABINE [Suspect]
     Active Substance: CYTARABINE
     Dosage: 16 DOSAGE FORM, QD, MOST RECENT DOSE ON 11/MAR/2020
     Route: 040
     Dates: start: 20200115, end: 20200303
  21. CYTARABINE [Suspect]
     Active Substance: CYTARABINE
     Dosage: 20 MG, QD, CUMULATIVE DOSE OF 1040MG, DOSAGE FORM: INFUSION, SOLUTION
     Route: 065
     Dates: start: 20200115, end: 20200303
  22. CYTARABINE [Suspect]
     Active Substance: CYTARABINE
     Dosage: 20 MG, QD (ON 11MAR2020), DOSAGE FORM: INFUSION, SOLUTION
     Route: 040
     Dates: start: 20200309, end: 20210311
  23. CYTARABINE [Suspect]
     Active Substance: CYTARABINE
     Dosage: 20 MG, QD (ON 11MAR2020), DOSAGE FORM: INFUSION, SOLUTION
     Route: 040
     Dates: start: 20210303
  24. CYTARABINE [Suspect]
     Active Substance: CYTARABINE
     Dosage: 20 MG, QD, LAST ADMINISTERED ON 11-MAR-2020,MOST RECENT DOSE OF CYTARABINE
     Route: 040
     Dates: start: 20200303
  25. CYTARABINE [Suspect]
     Active Substance: CYTARABINE
     Dosage: 20 MD, QD, DOSAGE FORM: INFUSION, SOLUTION, LAST ADMINISTERED ON 11-MAR-2020,MOST RECENT DOSE OF  CY
     Route: 040
     Dates: start: 20210309, end: 20210311
  26. CYTARABINE [Suspect]
     Active Substance: CYTARABINE
     Dosage: 20 MG , QD, LAST ADMINISTERED ON 11-MAR-2020,MOST RECENT DOSE OF
     Route: 040
     Dates: start: 20200309
  27. PARSACLISIB [Suspect]
     Active Substance: PARSACLISIB
     Indication: Mantle cell lymphoma
     Dosage: 20 MG, QD (DOSE PRIOR TO THE SERIOUS ADVERSE EVENTS (SAES) WAS TAKEN ON 03MAR2020) INCB 50465
     Route: 048
     Dates: start: 20200115, end: 20200303
  28. ACETAMINOPHEN [Concomitant]
     Active Substance: ACETAMINOPHEN
     Indication: Malaise
     Dosage: UNK
     Route: 065
     Dates: start: 20200319
  29. ACETAMINOPHEN [Concomitant]
     Active Substance: ACETAMINOPHEN
     Indication: Cough
     Dosage: UNK
     Route: 065
     Dates: start: 20200309
  30. ACETAMINOPHEN [Concomitant]
     Active Substance: ACETAMINOPHEN
     Indication: Decreased appetite
  31. MEROPENEM [Concomitant]
     Active Substance: MEROPENEM
     Indication: Decreased appetite
     Dosage: UNK
     Route: 065
     Dates: start: 20200319
  32. MEROPENEM [Concomitant]
     Active Substance: MEROPENEM
     Indication: Cough
     Dosage: UNK
     Route: 065
     Dates: start: 20200309
  33. MEROPENEM [Concomitant]
     Active Substance: MEROPENEM
     Indication: Malaise

REACTIONS (7)
  - Product use in unapproved indication [Unknown]
  - Intentional product use issue [Unknown]
  - Neutropenic sepsis [Recovered/Resolved]
  - Bronchitis [Recovered/Resolved]
  - Bronchitis [Recovered/Resolved]
  - Pneumonia [Recovered/Resolved]
  - Neutrophil count decreased [Recovered/Resolved]

NARRATIVE: CASE EVENT DATE: 20200309
